FAERS Safety Report 19105070 (Version 1)
Quarter: 2021Q2

REPORT INFORMATION
  Report Type: Spontaneous
  Country: IT (occurrence: IT)
  Receive Date: 20210408
  Receipt Date: 20210408
  Transmission Date: 20210717
  Serious: Yes (Hospitalization, Other)
  Sender: FDA-Public Use
  Company Number: IT-AUROBINDO-AUR-APL-2021-014678

PATIENT
  Age: 60 Year

DRUGS (3)
  1. TRANEXAMIC ACID SOLUTION FOR INJECTION [Suspect]
     Active Substance: TRANEXAMIC ACID
     Dosage: 10 MILLIGRAM/KILOGRAM, EVERY 4 HOUR, INTRAOPERATIVELY
     Route: 042
     Dates: start: 20190607
  2. TRANEXAMIC ACID SOLUTION FOR INJECTION [Suspect]
     Active Substance: TRANEXAMIC ACID
     Indication: PROPHYLAXIS
     Dosage: 10 MILLIGRAM/KILOGRAM, FIRST 24H POST SURGERY
     Route: 042
     Dates: start: 20190608
  3. TRANEXAMIC ACID SOLUTION FOR INJECTION [Suspect]
     Active Substance: TRANEXAMIC ACID
     Dosage: 10 MILLIGRAM/KILOGRAM, ONE HOUR BEFORE THE SURGERY
     Route: 042
     Dates: start: 20190607

REACTIONS (1)
  - Drug ineffective [Unknown]

NARRATIVE: CASE EVENT DATE: 20190607
